FAERS Safety Report 4964856-6 (Version None)
Quarter: 2006Q1

REPORT INFORMATION
  Report Type: 
  Country: None (occurrence: None)
  Receive Date: 20060331
  Receipt Date: 20060324
  Transmission Date: 20060701
  Serious: Yes (Other)
  Sender: FDA-Public Use
  Company Number: 200611304BCC

PATIENT
  Sex: Female
  Weight: 56.6996 kg

DRUGS (3)
  1. ALEVE [Suspect]
     Indication: ORAL SURGERY
     Dosage: SEE IMAGE
     Route: 048
  2. ALEVE [Suspect]
     Indication: POST PROCEDURAL COMPLICATION
     Dosage: SEE IMAGE
     Route: 048
  3. ALEVE [Suspect]
     Indication: TRIGEMINAL NEURALGIA
     Dosage: SEE IMAGE
     Route: 048

REACTIONS (7)
  - ABDOMINAL PAIN UPPER [None]
  - MUSCLE SPASMS [None]
  - OEDEMA PERIPHERAL [None]
  - URINARY INCONTINENCE [None]
  - URINARY RETENTION [None]
  - VISION BLURRED [None]
  - VISUAL ACUITY REDUCED [None]
